FAERS Safety Report 20192968 (Version 1)
Quarter: 2021Q4

REPORT INFORMATION
  Report Type: Spontaneous
  Country: CN (occurrence: CN)
  Receive Date: 20211216
  Receipt Date: 20211216
  Transmission Date: 20220303
  Serious: Yes (Other)
  Sender: FDA-Public Use
  Company Number: CN-Blueprint Medicines Corporation-SO-CN-2021-002487

PATIENT

DRUGS (3)
  1. GAVRETO [Suspect]
     Active Substance: PRALSETINIB
     Indication: Product used for unknown indication
     Route: 048
     Dates: start: 20210619, end: 20211130
  2. GAVRETO [Suspect]
     Active Substance: PRALSETINIB
     Route: 048
     Dates: start: 20211201, end: 202112
  3. GAVRETO [Suspect]
     Active Substance: PRALSETINIB
     Dosage: THE PATIENT MAINTAINED A  4 PLUS 1 DOSING PATTERN
     Route: 048
     Dates: start: 202112

REACTIONS (3)
  - Metastases to central nervous system [Unknown]
  - Metastases to meninges [Unknown]
  - Blood pressure increased [Unknown]

NARRATIVE: CASE EVENT DATE: 20211103
